FAERS Safety Report 9203251 (Version 1)
Quarter: 2013Q1

REPORT INFORMATION
  Report Type: Spontaneous
  Country: US (occurrence: None)
  Receive Date: 20120709
  Receipt Date: 20120709
  Transmission Date: 20140127
  Serious: Yes (Life-Threatening, Hospitalization, Other)
  Sender: FDA-Public Use
  Company Number: PHEH2011US08336

PATIENT
  Age: 68 Year
  Sex: Male
  Weight: 71.3 kg

DRUGS (14)
  1. GLEEVEC (IMATINIB) UNKNOWN [Suspect]
     Indication: CHRONIC MYELOID LEUKAEMIA
     Route: 048
     Dates: start: 20110707
  2. DIOVAN (VALSARTAN) [Concomitant]
  3. ASPIRIN (ACETYLSALICYLIC ACID) [Concomitant]
  4. CVS EASY FIBER [Concomitant]
  5. CVS STOOL SOFTENER (DOCUSATE SODIUM) [Concomitant]
  6. JANUVIA (SITAGLIPTIN PHOSPHATE) [Concomitant]
  7. LIPITOR /NET/ (ATORVASTATIN CALCIUM) [Concomitant]
  8. METFORMIN HYDROCHLORIDE (METFORMIN HYDROCHLORIDE) [Concomitant]
  9. PANTOPRAZOLE SODIUM (PANTOPRAZOLE SODIUM) [Concomitant]
  10. SM IRON [Concomitant]
  11. URSODIOL (URSODEOXYCHLOIC ACID) [Concomitant]
  12. VITAMIN B12 (CYANOCOBALMIN) [Concomitant]
  13. AMIODARONE (AMIODARONE) [Concomitant]
  14. AMBIEN (ZOLPIDEM TARTRATE) [Concomitant]

REACTIONS (12)
  - Acute myocardial infarction [None]
  - Gastrointestinal haemorrhage [None]
  - Hypotension [None]
  - Weight decreased [None]
  - Diarrhoea [None]
  - Joint swelling [None]
  - Blood pressure increased [None]
  - Fatigue [None]
  - Haemorrhage [None]
  - Volume blood decreased [None]
  - Ischaemia [None]
  - Gastrointestinal ulcer haemorrhage [None]
